FAERS Safety Report 8914208 (Version 1)
Quarter: 2012Q4

REPORT INFORMATION
  Report Type: 
  Country: JP (occurrence: JP)
  Receive Date: 20121119
  Receipt Date: 20121119
  Transmission Date: 20130627
  Serious: Yes (Hospitalization, Other)
  Sender: FDA-Public Use
  Company Number: JP-PFIZER INC-2012149042

PATIENT
  Age: 20 Year
  Sex: Male

DRUGS (5)
  1. LYRICA [Suspect]
     Indication: PAIN
     Dosage: UNK
     Route: 048
  2. LYRICA [Suspect]
     Dosage: 4050 mg
     Route: 048
     Dates: start: 20120620, end: 20120620
  3. DULOXETINE [Concomitant]
     Indication: MENTAL RETARDATION
     Dosage: 4 tablets of 20mg, single
     Route: 048
  4. DULOXETINE [Concomitant]
     Indication: NEUROFIBROMATOSIS
  5. NIZATIDINE [Concomitant]
     Dosage: 8 tablets of 150mg, single
     Route: 048

REACTIONS (5)
  - Suicide attempt [Unknown]
  - Suicidal ideation [Unknown]
  - Overdose [Recovered/Resolved]
  - Somnolence [Recovered/Resolved]
  - Altered state of consciousness [Recovering/Resolving]
